FAERS Safety Report 6198973-2 (Version None)
Quarter: 2009Q2

REPORT INFORMATION
  Report Type: 
  Country: None (occurrence: None)
  Receive Date: 20090519
  Receipt Date: 20090519
  Transmission Date: 20091009
  Serious: No
  Sender: FDA-Public Use
  Company Number: None

PATIENT
  Sex: Male
  Weight: 14.5151 kg

DRUGS (4)
  1. DEXAMETHASONE [Suspect]
     Indication: ADENOTONSILLECTOMY
     Dosage: 4MG OTO IV 6PM
     Route: 042
     Dates: start: 20090430
  2. DEXAMETHASONE [Suspect]
     Indication: SWELLING
     Dosage: 4MG OTO IV 6PM
     Route: 042
     Dates: start: 20090430
  3. LORTAB [Concomitant]
  4. LR IV [Concomitant]

REACTIONS (1)
  - VOMITING [None]
